FAERS Safety Report 22110913 (Version 1)
Quarter: 2023Q1

REPORT INFORMATION
  Report Type: Spontaneous
  Country: US (occurrence: US)
  Receive Date: 20230317
  Receipt Date: 20230317
  Transmission Date: 20230417
  Serious: No
  Sender: FDA-Public Use
  Company Number: US-PFIZER INC-202300117334

PATIENT
  Age: 23 Year
  Sex: Female
  Weight: 58.06 kg

DRUGS (3)
  1. PRISTIQ EXTENDED-RELEASE [Suspect]
     Active Substance: DESVENLAFAXINE SUCCINATE
     Indication: Depression
     Dosage: 50 MG, DAILY
     Dates: start: 2020, end: 2023
  2. PRISTIQ EXTENDED-RELEASE [Suspect]
     Active Substance: DESVENLAFAXINE SUCCINATE
     Indication: Anxiety
     Dosage: 25 MG
     Dates: start: 202302
  3. PRISTIQ EXTENDED-RELEASE [Suspect]
     Active Substance: DESVENLAFAXINE SUCCINATE
     Indication: Obsessive-compulsive disorder

REACTIONS (4)
  - Irritability [Unknown]
  - Pharyngitis streptococcal [Unknown]
  - Emotional disorder [Unknown]
  - Pyrexia [Unknown]

NARRATIVE: CASE EVENT DATE: 20230101
